FAERS Safety Report 6254098-9 (Version None)
Quarter: 2009Q3

REPORT INFORMATION
  Report Type: 
  Country: None (occurrence: None)
  Receive Date: 20090702
  Receipt Date: 20090623
  Transmission Date: 20100115
  Serious: Yes (Other)
  Sender: FDA-Public Use
  Company Number: PHHY2009VE25501

PATIENT
  Sex: Female

DRUGS (1)
  1. ACLASTA [Suspect]
     Dosage: 5 MG/YEAR
     Route: 042
     Dates: start: 20090316

REACTIONS (3)
  - BLADDER OPERATION [None]
  - DYSURIA [None]
  - MICTURITION URGENCY [None]
